FAERS Safety Report 5102585-9 (Version None)
Quarter: 2006Q3

REPORT INFORMATION
  Report Type: 
  Country: None (occurrence: None)
  Receive Date: 20060907
  Receipt Date: 20060825
  Transmission Date: 20061208
  Serious: Yes (Hospitalization)
  Sender: FDA-Public Use
  Company Number: GXKR2006IT05386

PATIENT
  Age: 67 Year
  Sex: Female

DRUGS (2)
  1. THIAMAZOLE (NGX) (THIAMAZOLE) UNKNOWN [Suspect]
     Indication: HYPERTHYROIDISM
     Dosage: 10 MG/DAY; 15 MG/DAY
  2. BRONCHODILATORS (NO INGREDIENTS/SUBSTANCES) [Concomitant]

REACTIONS (5)
  - ASTHMA [None]
  - EOSINOPHILIA [None]
  - OSTEOPOROSIS [None]
  - REVERSIBLE AIRWAYS OBSTRUCTION [None]
  - THERAPY NON-RESPONDER [None]
